FAERS Safety Report 9595759 (Version 2)
Quarter: 2013Q4

REPORT INFORMATION
  Report Type: Spontaneous
  Country: US (occurrence: US)
  Receive Date: 20131004
  Receipt Date: 20131021
  Transmission Date: 20140711
  Serious: Yes (Hospitalization, Other)
  Sender: FDA-Public Use
  Company Number: PHEH2013US020295

PATIENT
  Age: 47 Year
  Sex: Female
  Weight: 77.98 kg

DRUGS (17)
  1. GILENYA [Suspect]
     Indication: MULTIPLE SCLEROSIS
     Dosage: 0.5 MG, QD
     Route: 048
     Dates: start: 20130919, end: 20130923
  2. GLYCERYL TRINITRATE [Suspect]
     Dosage: 1:150
     Route: 060
  3. AZOR [Concomitant]
  4. PERCOCET [Concomitant]
  5. ESTROGEN [Concomitant]
  6. FIORICET [Concomitant]
  7. ESTRADIOL [Concomitant]
     Route: 048
  8. AMLODIPINE [Concomitant]
     Indication: HYPERTENSION
     Route: 048
  9. SIMVASTATIN [Concomitant]
     Indication: LOW DENSITY LIPOPROTEIN
     Dosage: 10 MG, QD
     Route: 048
  10. METFORMIN [Concomitant]
     Dosage: 500 MG, BID
  11. AMLODIPINE/BENAZEPRIL [Concomitant]
     Dosage: 10-20 MG
     Route: 048
  12. TYLENOL [Concomitant]
     Indication: HEADACHE
     Dosage: 975 MG, UNK
     Route: 048
  13. MORPHINE [Concomitant]
     Dosage: UNK UKN, PRN
     Route: 042
  14. LOVENOX [Concomitant]
     Indication: DEEP VEIN THROMBOSIS
  15. NITROSTAT [Concomitant]
  16. LORAZEPAM [Concomitant]
  17. HYDRALAZINE [Concomitant]

REACTIONS (14)
  - Chest discomfort [Recovered/Resolved]
  - Dyspnoea [Recovered/Resolved]
  - Atrioventricular block first degree [Unknown]
  - Diabetes mellitus [Unknown]
  - Blood glucose increased [Unknown]
  - Left ventricular hypertrophy [Unknown]
  - Fibrin D dimer increased [Unknown]
  - Syncope [Unknown]
  - Fatigue [Unknown]
  - Chest pain [Unknown]
  - Asthenia [Unknown]
  - Lymphocyte count decreased [Unknown]
  - Blood triglycerides increased [Unknown]
  - Headache [Unknown]
